FAERS Safety Report 9974864 (Version 1)
Quarter: 2014Q1

REPORT INFORMATION
  Report Type: Spontaneous
  Country: US (occurrence: US)
  Receive Date: 20140306
  Receipt Date: 20140306
  Transmission Date: 20141002
  Serious: Yes (Other)
  Sender: FDA-Public Use
  Company Number: US-ABBVIE-13P-163-1157811-00

PATIENT
  Age: 33 Year
  Sex: Female
  Weight: 47.67 kg

DRUGS (2)
  1. HUMIRA [Suspect]
     Indication: PSORIASIS
     Route: 058
     Dates: start: 200809, end: 201309
  2. ELAVIL [Concomitant]
     Indication: HYPERTENSION

REACTIONS (7)
  - Lupus-like syndrome [Unknown]
  - Rash [Recovered/Resolved]
  - Perivascular dermatitis [Recovered/Resolved]
  - Antinuclear antibody increased [Not Recovered/Not Resolved]
  - Anti-SS-A antibody positive [Unknown]
  - DNA antibody positive [Unknown]
  - Double stranded DNA antibody positive [Unknown]
